FAERS Safety Report 18559259 (Version 6)
Quarter: 2021Q3

REPORT INFORMATION
  Report Type: Spontaneous
  Country: US (occurrence: US)
  Receive Date: 20201130
  Receipt Date: 20210805
  Transmission Date: 20211014
  Serious: No
  Sender: FDA-Public Use
  Company Number: US-PFIZER INC-2020469327

PATIENT
  Age: 49 Year

DRUGS (1)
  1. DEPO?PROVERA [Suspect]
     Active Substance: MEDROXYPROGESTERONE ACETATE
     Dosage: UNK UNK, CYCLIC (EVERY 13 WEEKS)

REACTIONS (2)
  - Migraine [Unknown]
  - Product use issue [Unknown]
